FAERS Safety Report 5765291-3 (Version None)
Quarter: 2008Q2

REPORT INFORMATION
  Report Type: 
  Country: None (occurrence: None)
  Receive Date: 20080611
  Receipt Date: 20080604
  Transmission Date: 20081010
  Serious: Yes (Hospitalization, Other)
  Sender: FDA-Public Use
  Company Number: CA-ABBOTT-08P-028-0452594-00

PATIENT
  Sex: Male
  Weight: 72.64 kg

DRUGS (2)
  1. HUMIRA [Suspect]
     Indication: RHEUMATOID ARTHRITIS
     Route: 058
     Dates: start: 20080407, end: 20080426
  2. ANTIBIOTICS [Concomitant]
     Indication: PNEUMONIA
     Route: 048

REACTIONS (5)
  - COLLAPSE OF LUNG [None]
  - LUNG NEOPLASM [None]
  - PAIN [None]
  - PNEUMONIA [None]
  - PNEUMOTHORAX [None]
